FAERS Safety Report 23753619 (Version 1)
Quarter: 2024Q2

REPORT INFORMATION
  Report Type: Spontaneous
  Country: US (occurrence: US)
  Receive Date: 20240417
  Receipt Date: 20240417
  Transmission Date: 20240715
  Serious: No
  Sender: FDA-Public Use
  Company Number: US-SMPA-2024SUN000265

PATIENT

DRUGS (2)
  1. APTIOM [Suspect]
     Active Substance: ESLICARBAZEPINE ACETATE
     Indication: Petit mal epilepsy
     Dosage: UNK UNK, BID (ONE 400MG PILL IN THE MORNING AND THREE 400MG PILLS IN THE EVENING)
     Route: 048
  2. KEPPRA [Concomitant]
     Active Substance: LEVETIRACETAM
     Indication: Seizure
     Dosage: 250 MG (DOSE UNKNOWN, THINKS 250 TWICE DAILY: MORNING AND NIGHT, UNIT OF MEASUREMENT UNKNOWN)
     Route: 065

REACTIONS (3)
  - Road traffic accident [Unknown]
  - Spinal operation [Unknown]
  - Off label use [Unknown]

NARRATIVE: CASE EVENT DATE: 20220430
